FAERS Safety Report 7541090-7 (Version None)
Quarter: 2011Q2

REPORT INFORMATION
  Report Type: 
  Country: None (occurrence: None)
  Receive Date: 20110610
  Receipt Date: 20110609
  Transmission Date: 20111010
  Serious: Yes (Hospitalization)
  Sender: FDA-Public Use
  Company Number: NL-ABBOTT-11P-114-0695815-00

PATIENT
  Sex: Male

DRUGS (1)
  1. HUMIRA [Suspect]
     Indication: CROHN'S DISEASE
     Route: 058
     Dates: start: 20101217

REACTIONS (4)
  - ANGIOPLASTY [None]
  - ABDOMINAL DISTENSION [None]
  - INJECTION SITE HYPERSENSITIVITY [None]
  - VOMITING [None]
